FAERS Safety Report 9023395 (Version 2)
Quarter: 2013Q2

REPORT INFORMATION
  Report Type: Report from Study
  Country: US (occurrence: US)
  Receive Date: 20130121
  Receipt Date: 20130605
  Transmission Date: 20140414
  Serious: Yes (Hospitalization, Other)
  Sender: FDA-Public Use
  Company Number: US-ABBOTT-13P-163-1035638-00

PATIENT
  Age: 74 Year
  Sex: Male
  Weight: 56.75 kg

DRUGS (18)
  1. HUMIRA [Suspect]
     Indication: RHEUMATOID ARTHRITIS
     Dates: start: 2006, end: 201205
  2. METHOTREXATE [Concomitant]
     Indication: RHEUMATOID ARTHRITIS
  3. FORADIL AEROLIZER [Concomitant]
     Indication: CHRONIC OBSTRUCTIVE PULMONARY DISEASE
  4. BUDESONIDE [Concomitant]
     Indication: CHRONIC OBSTRUCTIVE PULMONARY DISEASE
  5. ALBUTEROL [Concomitant]
     Indication: CHRONIC OBSTRUCTIVE PULMONARY DISEASE
  6. FLONASE [Concomitant]
     Indication: HYPERSENSITIVITY
  7. MUCINEX [Concomitant]
     Indication: CHRONIC OBSTRUCTIVE PULMONARY DISEASE
  8. LOSARTAN [Concomitant]
     Indication: HYPERTENSION
  9. ASPIRIN [Concomitant]
     Indication: CARDIAC DISORDER
  10. IMDUR [Concomitant]
     Indication: HYPERTENSION
  11. PREDNISONE [Concomitant]
     Indication: RHEUMATOID ARTHRITIS
  12. SIMVASTATIN [Concomitant]
     Indication: BLOOD CHOLESTEROL INCREASED
  13. ETODOLAC [Concomitant]
     Indication: PAIN
  14. FOLIC ACID [Concomitant]
     Indication: VITAMIN SUPPLEMENTATION
  15. TRAMADOL [Concomitant]
     Indication: PAIN
  16. GLIMIPRIDE [Concomitant]
     Indication: DIABETES MELLITUS
  17. METFORMIN [Concomitant]
     Indication: DIABETES MELLITUS
  18. PIOGLITAZONE [Concomitant]
     Indication: DIABETES MELLITUS

REACTIONS (6)
  - Chronic obstructive pulmonary disease [Recovered/Resolved]
  - Cardiac failure [Unknown]
  - Coronary artery bypass [Unknown]
  - Cardiomyopathy [Unknown]
  - Emphysema [Unknown]
  - Ejection fraction decreased [Unknown]
